FAERS Safety Report 25338192 (Version 1)
Quarter: 2025Q2

REPORT INFORMATION
  Report Type: Spontaneous
  Country: US (occurrence: US)
  Receive Date: 20250520
  Receipt Date: 20250520
  Transmission Date: 20250717
  Serious: No
  Sender: Thea Pharma
  Company Number: US-THEA-2025000714

PATIENT
  Sex: Female

DRUGS (1)
  1. COSOPT [Suspect]
     Active Substance: DORZOLAMIDE HYDROCHLORIDE\TIMOLOL MALEATE
     Indication: Glaucoma
     Dosage: BOTH EYES
     Route: 047
     Dates: start: 2022, end: 2022

REACTIONS (5)
  - Drug hypersensitivity [Recovered/Resolved]
  - Blood glucose decreased [Recovered/Resolved]
  - Nausea [Recovered/Resolved]
  - Asthenia [Recovered/Resolved]
  - Visual impairment [Recovered/Resolved]

NARRATIVE: CASE EVENT DATE: 20220101
